FAERS Safety Report 17069281 (Version 1)
Quarter: 2019Q4

REPORT INFORMATION
  Report Type: Report from Study
  Country: GB (occurrence: GB)
  Receive Date: 20191125
  Receipt Date: 20191125
  Transmission Date: 20200122
  Serious: Yes (Other)
  Sender: FDA-Public Use
  Company Number: GB-BRISTOL-MYERS SQUIBB COMPANY-BMS-2018-003208

PATIENT
  Sex: Male

DRUGS (1)
  1. ABATACEPT [Suspect]
     Active Substance: ABATACEPT
     Indication: RHEUMATOID ARTHRITIS
     Dosage: 125 MG, QWK
     Route: 058
     Dates: start: 20170627

REACTIONS (6)
  - Rhinorrhoea [Recovering/Resolving]
  - Tuberculosis [Unknown]
  - Chronic obstructive pulmonary disease [Unknown]
  - Asbestosis [Unknown]
  - Lower respiratory tract infection [Unknown]
  - Pneumonia [Unknown]
